FAERS Safety Report 5692890-X (Version None)
Quarter: 2008Q2

REPORT INFORMATION
  Report Type: 
  Country: None (occurrence: None)
  Receive Date: 20080326
  Receipt Date: 20071030
  Transmission Date: 20081010
  Serious: No
  Sender: FDA-Public Use
  Company Number: US-CVT-070178

PATIENT
  Age: 66 Year
  Sex: Male
  Weight: 86.2 kg

DRUGS (7)
  1. RANEXA [Suspect]
     Indication: CHEST PAIN
     Dosage: 500 MG, BID, ORAL
     Route: 048
     Dates: start: 20071005, end: 20071030
  2. PREVACID [Concomitant]
  3. QUESTRAN [Concomitant]
  4. BECONASE [Concomitant]
  5. ASTELIN [Concomitant]
  6. LOPID [Concomitant]
  7. ASPIRIN [Concomitant]

REACTIONS (2)
  - FATIGUE [None]
  - INSOMNIA [None]
